FAERS Safety Report 15959581 (Version 3)
Quarter: 2019Q3

REPORT INFORMATION
  Report Type: Spontaneous
  Country: PT (occurrence: PT)
  Receive Date: 20190214
  Receipt Date: 20190814
  Transmission Date: 20191004
  Serious: Yes (Death, Hospitalization, Other)
  Sender: FDA-Public Use
  Company Number: PT-ACCORD-107309

PATIENT
  Age: 76 Year
  Sex: Female

DRUGS (3)
  1. VALGANCICLOVIR/VALGANCICLOVIR HYDROCHLORIDE [Suspect]
     Active Substance: VALGANCICLOVIR
     Indication: CYTOMEGALOVIRUS COLITIS
  2. METHOTREXATE. [Suspect]
     Active Substance: METHOTREXATE
     Indication: RHEUMATOID ARTHRITIS
  3. PREDNISOLONE. [Suspect]
     Active Substance: PREDNISOLONE
     Indication: RHEUMATOID ARTHRITIS

REACTIONS (4)
  - Leukopenia [Fatal]
  - Refractory cytopenia with unilineage dysplasia [Unknown]
  - Thrombocytopenia [Fatal]
  - Cytomegalovirus colitis [Fatal]
